FAERS Safety Report 10818133 (Version 1)
Quarter: 2015Q1

REPORT INFORMATION
  Report Type: Report from Study
  Country: US (occurrence: US)
  Receive Date: 20150218
  Receipt Date: 20150218
  Transmission Date: 20150721
  Serious: No
  Sender: FDA-Public Use
  Company Number: US-GLAXOSMITHKLINE-US2014GSK051012

PATIENT
  Sex: Female

DRUGS (1)
  1. TAZAROTENE CUTANEOUS FOAM [Suspect]
     Active Substance: TAZAROTENE
     Indication: ACNE
     Dosage: UNK

REACTIONS (1)
  - Dry skin [Unknown]
